FAERS Safety Report 4345856-6 (Version None)
Quarter: 2004Q2

REPORT INFORMATION
  Report Type: 
  Country: None (occurrence: None)
  Receive Date: 20040423
  Receipt Date: 20040423
  Transmission Date: 20050107
  Serious: Yes (Hospitalization)
  Sender: FDA-Public Use
  Company Number: None

PATIENT
  Sex: Male
  Weight: 106 kg

DRUGS (4)
  1. HYDROCHLOROTHIAZIDE [Suspect]
     Dates: start: 20040201, end: 20040422
  2. ALTACE [Concomitant]
  3. ATENOLOL [Concomitant]
  4. CRESTOR [Concomitant]

REACTIONS (1)
  - PLATELET COUNT DECREASED [None]
